FAERS Safety Report 4504892-7 (Version None)
Quarter: 2004Q4

REPORT INFORMATION
  Report Type: 
  Country: None (occurrence: None)
  Receive Date: 20040928
  Receipt Date: 20040713
  Transmission Date: 20050328
  Serious: No
  Sender: FDA-Public Use
  Company Number: 04P-163-0266877-00

PATIENT
  Age: 61 Year
  Sex: Female
  Weight: 83.4619 kg

DRUGS (10)
  1. HUMIRA [Suspect]
     Indication: RHEUMATOID ARTHRITIS
     Dosage: 40 MG, 1 IN 2 WK, SUBCUTANEOUS
     Route: 058
     Dates: start: 20040615
  2. TRILISATE [Concomitant]
  3. IBUPROFEN [Concomitant]
  4. QUINAPRIL HYDROCHLORIDE [Concomitant]
  5. POTASSIUM CHLORIDE [Concomitant]
  6. FUROSEMIDE [Concomitant]
  7. ATORVASTATIN CALCIUM [Concomitant]
  8. PROVELLA-14 [Concomitant]
  9. IPATROPIUM BROMIDE [Concomitant]
  10. SALBUTAMOL [Concomitant]

REACTIONS (2)
  - INJECTION SITE HAEMORRHAGE [None]
  - INJECTION SITE STINGING [None]
